FAERS Safety Report 6491490-1 (Version None)
Quarter: 2009Q4

REPORT INFORMATION
  Report Type: 
  Country: None (occurrence: None)
  Receive Date: 20091123
  Receipt Date: 20090903
  Transmission Date: 20100525
  Serious: No
  Sender: FDA-Public Use
  Company Number: 8051706

PATIENT
  Sex: Female
  Weight: 70.4 kg

DRUGS (5)
  1. CIMZIA [Suspect]
     Indication: CROHN'S DISEASE
     Dosage: 400 MG SC
     Route: 058
     Dates: start: 20090912
  2. PENTASA [Concomitant]
  3. PURINETHOL [Concomitant]
  4. IRON [Concomitant]
  5. PREDNISONE [Concomitant]

REACTIONS (2)
  - FUNGAL INFECTION [None]
  - VAGINITIS BACTERIAL [None]
